FAERS Safety Report 8901842 (Version 1)
Quarter: 2012Q4

REPORT INFORMATION
  Report Type: Spontaneous
  Country: US (occurrence: None)
  Receive Date: 20121107
  Receipt Date: 20121107
  Transmission Date: 20130627
  Serious: Yes (Hospitalization)
  Sender: FDA-Public Use
  Company Number: USA/USA/12/0026469

PATIENT
  Age: 77 Year
  Sex: Male
  Weight: 70 kg

DRUGS (4)
  1. AUGMENTIN [Suspect]
     Indication: HAEMORRHAGE PROPHYLAXIS
     Dosage: 2 in 1 D
     Route: 048
     Dates: start: 20120813, end: 20120816
  2. ENZALUTAMIDE [Suspect]
     Indication: PROSTATE CANCER
     Route: 048
     Dates: start: 20120612, end: 20120815
  3. METFORMIN (METFORMIN HYDROCHLORIDE) [Concomitant]
  4. PREDNISONE (PREDNISONE) [Concomitant]

REACTIONS (18)
  - Nausea [None]
  - Vomiting [None]
  - Decreased appetite [None]
  - Asthenia [None]
  - Malaise [None]
  - Vertigo [None]
  - Dehydration [None]
  - Fatigue [None]
  - Immobile [None]
  - Dysstasia [None]
  - Cardiomegaly [None]
  - Intervertebral disc degeneration [None]
  - Thyroid neoplasm [None]
  - Central nervous system lesion [None]
  - Haemoglobin decreased [None]
  - Haematocrit decreased [None]
  - Blood glucose increased [None]
  - Blood urea increased [None]
